FAERS Safety Report 5172274-3 (Version None)
Quarter: 2006Q4

REPORT INFORMATION
  Report Type: 
  Country: None (occurrence: None)
  Receive Date: 20061205
  Receipt Date: 20061116
  Transmission Date: 20070319
  Serious: Yes (Other)
  Sender: FDA-Public Use
  Company Number: US-2006-026161

PATIENT
  Age: 38 Year
  Sex: Female
  Weight: 99.8 kg

DRUGS (4)
  1. BETASERON [Suspect]
     Indication: RELAPSING-REMITTING MULTIPLE SCLEROSIS
     Dosage: 8 MIU, EVERY 2D, SUBCUTANEOUS
     Route: 058
     Dates: start: 20060505
  2. EFFEXOR [Concomitant]
  3. BACLOFEN [Concomitant]
  4. ATENOLOL [Concomitant]

REACTIONS (10)
  - CONVULSION [None]
  - DIZZINESS [None]
  - EYE ROLLING [None]
  - INJECTION SITE ERYTHEMA [None]
  - INJECTION SITE INFLAMMATION [None]
  - INJECTION SITE PRURITUS [None]
  - INJECTION SITE WARMTH [None]
  - MUSCLE SPASMS [None]
  - MUSCULOSKELETAL STIFFNESS [None]
  - VISION BLURRED [None]
